FAERS Safety Report 9685254 (Version 1)
Quarter: 2013Q4

REPORT INFORMATION
  Report Type: Spontaneous
  Country: CA (occurrence: CA)
  Receive Date: 20131113
  Receipt Date: 20131113
  Transmission Date: 20140711
  Serious: Yes (Hospitalization)
  Sender: FDA-Public Use
  Company Number: CA-MYLANLABS-2013S1024763

PATIENT
  Age: 57 Year
  Sex: Male

DRUGS (9)
  1. ATENOLOL [Suspect]
     Indication: INTENTIONAL OVERDOSE
     Dosage: 50 TABLETS OF ATENOLOL 50MG
     Route: 048
  2. ATENOLOL [Suspect]
     Indication: INTENTIONAL OVERDOSE
     Route: 065
  3. LITHIUM [Suspect]
     Route: 065
  4. AMLODIPINE [Concomitant]
     Route: 065
  5. METHYLPHENIDATE [Concomitant]
     Route: 065
  6. LAMOTRIGINE [Concomitant]
     Route: 065
  7. LEVOTHYROXINE SODIUM [Concomitant]
     Route: 065
  8. CLONAZEPAM [Concomitant]
     Route: 065
  9. MIRTAZAPINE [Concomitant]
     Route: 065

REACTIONS (7)
  - Intentional overdose [Recovering/Resolving]
  - Toxicity to various agents [Recovering/Resolving]
  - Depressed level of consciousness [Recovering/Resolving]
  - Hypotension [Recovering/Resolving]
  - Bradycardia [Recovering/Resolving]
  - Suicide attempt [Recovering/Resolving]
  - Renal failure chronic [Unknown]
